FAERS Safety Report 16193568 (Version 2)
Quarter: 2019Q2

REPORT INFORMATION
  Report Type: Spontaneous
  Country: US (occurrence: US)
  Receive Date: 20190413
  Receipt Date: 20190527
  Transmission Date: 20190711
  Serious: No
  Sender: FDA-Public Use
  Company Number: US-009507513-1903USA011155

PATIENT
  Age: 15 Year
  Sex: Female
  Weight: 53.52 kg

DRUGS (2)
  1. NEXPLANON [Suspect]
     Active Substance: ETONOGESTREL
     Dosage: 68 MILLIGRAM
     Route: 059
     Dates: start: 20190212, end: 20190212
  2. NEXPLANON [Suspect]
     Active Substance: ETONOGESTREL
     Dosage: 68 MILLIGRAM
     Route: 059
     Dates: start: 20190212

REACTIONS (3)
  - Complication of device insertion [Recovered/Resolved]
  - Device deployment issue [Recovered/Resolved]
  - Device dispensing error [Unknown]

NARRATIVE: CASE EVENT DATE: 20190212
